FAERS Safety Report 7469256-5 (Version None)
Quarter: 2011Q2

REPORT INFORMATION
  Report Type: 
  Country: None (occurrence: None)
  Receive Date: 20110510
  Receipt Date: 20110427
  Transmission Date: 20111010
  Serious: Yes (Life-Threatening, Other)
  Sender: FDA-Public Use
  Company Number: JP-JNJFOC-20110500669

PATIENT
  Age: 94 Year
  Sex: Male
  Weight: 56 kg

DRUGS (5)
  1. RISPERDAL [Suspect]
     Indication: DELIRIUM
     Route: 048
  2. ASPIRIN [Concomitant]
     Route: 048
  3. PLAVIX [Concomitant]
     Route: 048
  4. TAKEPRON [Concomitant]
     Route: 065
  5. LIPITOR [Concomitant]
     Route: 048

REACTIONS (3)
  - ATRIOVENTRICULAR BLOCK COMPLETE [None]
  - CIRCULATORY COLLAPSE [None]
  - OFF LABEL USE [None]
